FAERS Safety Report 7286483-0 (Version None)
Quarter: 2011Q1

REPORT INFORMATION
  Report Type: 
  Country: None (occurrence: None)
  Receive Date: 20110210
  Receipt Date: 20110202
  Transmission Date: 20110831
  Serious: Yes (Other)
  Sender: FDA-Public Use
  Company Number: US-ROCHE-758362

PATIENT
  Sex: Female
  Weight: 158 kg

DRUGS (10)
  1. KLOR-CON [Concomitant]
  2. CALTRATE 600 + D [Concomitant]
  3. EVISTA [Concomitant]
  4. LEVOTHYROXINE SODIUM [Concomitant]
  5. NEXIUM [Concomitant]
  6. TIAZAC [Concomitant]
  7. ASPIRIN [Concomitant]
  8. ASCORBIC ACID [Concomitant]
  9. HYDROCHLOROTHIAZIDE [Concomitant]
  10. BONIVA [Suspect]
     Indication: OSTEOPENIA
     Dosage: STOP DATE: END OF 2010
     Route: 048
     Dates: start: 20080101, end: 20101201

REACTIONS (1)
  - RENAL ATROPHY [None]
